FAERS Safety Report 8336743-7 (Version None)
Quarter: 2012Q2

REPORT INFORMATION
  Report Type: 
  Country: None (occurrence: None)
  Receive Date: 20120504
  Receipt Date: 20120424
  Transmission Date: 20120825
  Serious: No
  Sender: FDA-Public Use
  Company Number: CA-JNJFOC-20120411787

PATIENT
  Sex: Female
  Weight: 54 kg

DRUGS (7)
  1. FISH OIL [Concomitant]
     Route: 065
  2. MESALAMINE [Concomitant]
     Route: 065
  3. CALCIUM [Concomitant]
     Route: 065
  4. REMICADE [Suspect]
     Indication: COLITIS ULCERATIVE
     Route: 042
     Dates: start: 20110920
  5. PREDNISONE [Concomitant]
     Dosage: 8 TABLETS ALERNATE WITH 6 TABLETS
     Route: 065
  6. PURINETHOL [Concomitant]
     Route: 065
  7. VITAMIN D [Concomitant]
     Route: 065

REACTIONS (2)
  - FUNGAL INFECTION [None]
  - HEADACHE [None]
